FAERS Safety Report 7341957-9 (Version None)
Quarter: 2011Q1

REPORT INFORMATION
  Report Type: 
  Country: None (occurrence: None)
  Receive Date: 20110309
  Receipt Date: 20110228
  Transmission Date: 20110831
  Serious: Yes (Hospitalization, Other)
  Sender: FDA-Public Use
  Company Number: US-CELGENEUS-163-21880-11010832

PATIENT
  Sex: Female
  Weight: 48.1 kg

DRUGS (29)
  1. FENTANYL [Concomitant]
     Dosage: 50 MICROGRAM
     Route: 062
  2. DILAUDID [Concomitant]
     Indication: PAIN
     Dosage: 4 MILLIGRAM
     Route: 065
  3. LOVASTATIN [Concomitant]
     Dosage: 20 MILLIGRAM
     Route: 065
  4. ENOXAPARIN [Concomitant]
     Route: 065
  5. DEXAMETHASONE [Concomitant]
     Dosage: 40 MILLIGRAM
     Route: 065
  6. OXYCODONE [Concomitant]
     Indication: PAIN
     Dosage: 5 MILLIGRAM
     Route: 065
  7. FENTANYL [Concomitant]
     Dosage: 75 MICROGRAM
     Route: 062
  8. IMIPRAMINE [Concomitant]
     Dosage: 25 MILLIGRAM
     Route: 065
  9. FORADIL [Concomitant]
     Route: 065
  10. DOCUSATE [Concomitant]
     Route: 065
  11. MULTI-VITAMINS [Concomitant]
     Route: 065
  12. VITAMIN D [Concomitant]
     Route: 065
  13. CALCIUM CARBONATE [Concomitant]
     Route: 065
  14. GABAPENTIN [Concomitant]
     Route: 065
  15. SENNA [Concomitant]
     Route: 065
  16. PRILOSEC [Concomitant]
     Indication: GASTRIC DISORDER
     Route: 065
  17. AREDIA [Concomitant]
     Route: 050
  18. ALBUTEROL [Concomitant]
     Route: 055
  19. TRAZODONE HCL [Concomitant]
     Route: 065
  20. ALPRAZOLAM [Concomitant]
     Route: 065
  21. CHOLECALCIFEROL [Concomitant]
     Route: 065
  22. GUAIFENESIN [Concomitant]
     Route: 065
  23. LORAZEPAM [Concomitant]
     Route: 065
  24. REVLIMID [Suspect]
     Indication: MULTIPLE MYELOMA
     Dosage: 10 MILLIGRAM
     Route: 048
     Dates: start: 20100721
  25. ASPIRIN [Concomitant]
     Dosage: 81 MILLIGRAM
     Route: 065
  26. ARFORMOTEROL [Concomitant]
     Route: 065
  27. INSULIN [Concomitant]
     Route: 065
  28. MORPHINE [Concomitant]
     Dosage: 30 MILLIGRAM
     Route: 065
  29. ONDANSETRON [Concomitant]
     Route: 065

REACTIONS (2)
  - PLASMACYTOMA [None]
  - PAIN [None]
